FAERS Safety Report 19911802 (Version 1)
Quarter: 2021Q4

REPORT INFORMATION
  Report Type: Spontaneous
  Country: GB (occurrence: GB)
  Receive Date: 20211004
  Receipt Date: 20211004
  Transmission Date: 20220303
  Serious: Yes (Other)
  Sender: FDA-Public Use
  Company Number: None

PATIENT
  Age: 32 Year
  Sex: Female
  Weight: 96 kg

DRUGS (8)
  1. DOXYCYCLINE [Suspect]
     Active Substance: DOXYCYCLINE
     Dosage: 100 MILLIGRAM DAILY;
     Dates: start: 20210824
  2. CETRABEN EMOLLIENT CREAM [Concomitant]
     Dosage: APPLY EVERY DAY TO WHOLE BODY BEFORE BATHING. R...
     Dates: start: 20210824, end: 20210831
  3. BECLOMETHASONE DIPROPIONATE [Concomitant]
     Active Substance: BECLOMETHASONE DIPROPIONATE
     Dosage: 4 DOSAGE FORMS DAILY;
     Route: 055
     Dates: start: 20191008
  4. CLINDAMYCIN [Concomitant]
     Active Substance: CLINDAMYCIN
     Dosage: 2 DOSAGE FORMS DAILY; TO AREAS PRONE TO BOILS
     Dates: start: 20210824, end: 20210825
  5. FEXOFENADINE [Concomitant]
     Active Substance: FEXOFENADINE HYDROCHLORIDE
     Dosage: 1 DOSAGE FORMS DAILY;
     Dates: start: 20180423
  6. MOMETASONE [Concomitant]
     Active Substance: MOMETASONE
     Dosage: APPLY DAILY WHEN BAD AND REDUCE TO 2-3 TIMES A ...
     Dates: start: 20210824, end: 20210921
  7. SPIRONOLACTONE [Concomitant]
     Active Substance: SPIRONOLACTONE
     Dosage: 1 DOSAGE FORMS DAILY; FOR 1 MONTH THEN INCREASE TO 2 DAILY
     Dates: start: 20210907
  8. VENTOLIN [Concomitant]
     Active Substance: ALBUTEROL SULFATE
     Dosage: 1-2 DOSES AS NEEDED UP TO FOUR TIMES DAILY
     Route: 055
     Dates: start: 20200225

REACTIONS (1)
  - Hallucination [Unknown]

NARRATIVE: CASE EVENT DATE: 20210922
